FAERS Safety Report 11783086 (Version 2)
Quarter: 2015Q4

REPORT INFORMATION
  Report Type: Spontaneous
  Country: IE (occurrence: IE)
  Receive Date: 20151127
  Receipt Date: 20151210
  Transmission Date: 20160305
  Serious: Yes (Hospitalization, Other)
  Sender: FDA-Public Use
  Company Number: IE-009507513-1511IRL010624

PATIENT
  Age: 34 Year
  Sex: Female

DRUGS (5)
  1. GONAL-F [Suspect]
     Active Substance: FOLLITROPIN
     Indication: HORMONE THERAPY
  2. SYNAREL [Suspect]
     Active Substance: NAFARELIN ACETATE
     Indication: ASSISTED FERTILISATION
     Dosage: 2 SNIFFS (1 IN EACH NOSTRILL) TWICE DAILY (2 DOSAGE FORM)
     Route: 045
     Dates: start: 20150718, end: 20150815
  3. CRINONE [Suspect]
     Active Substance: PROGESTERONE
     Indication: ASSISTED FERTILISATION
     Dosage: NOCTE (1 DOSAGE FORM)
     Route: 061
     Dates: start: 20150817, end: 20150903
  4. PREGNYL [Suspect]
     Active Substance: CHORIOGONADOTROPIN ALFA
     Indication: ASSISTED FERTILISATION
     Dosage: UNK
     Route: 058
     Dates: start: 20150815
  5. GONAL-F [Suspect]
     Active Substance: FOLLITROPIN
     Indication: ASSISTED FERTILISATION
     Dosage: 225 IU, UNKNOWN
     Route: 058
     Dates: start: 20150806, end: 20150814

REACTIONS (8)
  - Abdominal distension [Recovered/Resolved]
  - Adnexal torsion [Recovered/Resolved]
  - Pain [Recovered/Resolved]
  - Abdominal pain [Recovered/Resolved]
  - Ovarian hyperstimulation syndrome [Recovered/Resolved]
  - Ovarian cyst [Recovered/Resolved]
  - Pelvic fluid collection [Recovering/Resolving]
  - Abdominal pain [Recovered/Resolved]

NARRATIVE: CASE EVENT DATE: 20150831
